FAERS Safety Report 15103982 (Version 3)
Quarter: 2018Q3

REPORT INFORMATION
  Report Type: Spontaneous
  Country: US (occurrence: US)
  Receive Date: 20180703
  Receipt Date: 20180813
  Transmission Date: 20181010
  Serious: Yes (Hospitalization, Other)
  Sender: FDA-Public Use
  Company Number: US-LEXICON PHARMACEUTICALS, INC-18-1606-00756

PATIENT
  Sex: Male

DRUGS (1)
  1. TELOTRISTAT ETHYL [Suspect]
     Active Substance: TELOTRISTAT ETHYL
     Indication: CARCINOID TUMOUR
     Route: 048
     Dates: start: 20180405

REACTIONS (8)
  - Abdominal pain [Unknown]
  - Defaecation urgency [Recovering/Resolving]
  - Ageusia [Unknown]
  - Headache [Recovering/Resolving]
  - Radiotherapy [Not Recovered/Not Resolved]
  - Asthenia [Unknown]
  - Infusion [Unknown]
  - Nausea [Unknown]

NARRATIVE: CASE EVENT DATE: 2018
